FAERS Safety Report 21390205 (Version 1)
Quarter: 2022Q3

REPORT INFORMATION
  Report Type: Spontaneous
  Country: US (occurrence: US)
  Receive Date: 20220929
  Receipt Date: 20220929
  Transmission Date: 20221027
  Serious: No
  Sender: FDA-Public Use
  Company Number: US-MIMS-CORIMC-1254

PATIENT
  Sex: Male

DRUGS (3)
  1. AZSTARYS [Suspect]
     Active Substance: DEXMETHYLPHENIDATE HYDROCHLORIDE\SERDEXMETHYLPHENIDATE CHLORIDE
     Indication: Attention deficit hyperactivity disorder
     Dosage: 39.2 /7.8 MG, QD
     Route: 065
     Dates: start: 20220423, end: 20220429
  2. SERTRALINE [Concomitant]
     Active Substance: SERTRALINE HYDROCHLORIDE
     Indication: Product used for unknown indication
  3. GUANFACINE [Concomitant]
     Active Substance: GUANFACINE
     Indication: Product used for unknown indication

REACTIONS (1)
  - Vomiting [Recovered/Resolved]

NARRATIVE: CASE EVENT DATE: 20220425
